FAERS Safety Report 9621358 (Version 1)
Quarter: 2013Q4

REPORT INFORMATION
  Report Type: Spontaneous
  Country: US (occurrence: None)
  Receive Date: 20131011
  Receipt Date: 20131011
  Transmission Date: 20140711
  Serious: Yes (Hospitalization)
  Sender: FDA-Public Use
  Company Number: None

PATIENT
  Age: 54 Year
  Sex: Male
  Weight: 84 kg

DRUGS (1)
  1. INTRON-A (INTERFERON ALFA-2B) [Suspect]

REACTIONS (7)
  - Intentional overdose [None]
  - Alcohol poisoning [None]
  - Unresponsive to stimuli [None]
  - Impaired work ability [None]
  - Depression [None]
  - Laceration [None]
  - Liver function test abnormal [None]
